FAERS Safety Report 6331175-5 (Version None)
Quarter: 2009Q3

REPORT INFORMATION
  Report Type: 
  Country: None (occurrence: None)
  Receive Date: 20090827
  Receipt Date: 20090818
  Transmission Date: 20100115
  Serious: Yes (Life-Threatening, Hospitalization)
  Sender: FDA-Public Use
  Company Number: GB-PFIZER INC-2009245292

PATIENT
  Age: 26 Year

DRUGS (4)
  1. SOMATROPIN [Suspect]
     Indication: RHABDOMYOSARCOMA
     Dosage: 1 MG, 1X/DAY
  2. YASMIN [Concomitant]
     Dosage: UNK
     Dates: start: 20090324
  3. PROCHLORPERAZINE [Concomitant]
     Dosage: 5 MG, 3X/DAY
     Dates: start: 20090101
  4. MEBEVERINE [Concomitant]
     Dosage: 135 MG, 3X/DAY
     Dates: start: 20080508

REACTIONS (1)
  - APPENDICITIS [None]
